FAERS Safety Report 8406390-7 (Version None)
Quarter: 2012Q2

REPORT INFORMATION
  Report Type: 
  Country: None (occurrence: None)
  Receive Date: 20120604
  Receipt Date: 20120531
  Transmission Date: 20120825
  Serious: Yes (Other)
  Sender: FDA-Public Use
  Company Number: PHHY2011CA105801

PATIENT
  Sex: Male

DRUGS (2)
  1. SANDOSTATIN LAR [Suspect]
     Indication: METASTATIC CARCINOID TUMOUR
     Dosage: 40 MG, QMO
     Route: 030
     Dates: start: 20110325
  2. SINEMET [Concomitant]

REACTIONS (8)
  - NEOPLASM PROGRESSION [None]
  - PHYSICAL DISABILITY [None]
  - MEMORY IMPAIRMENT [None]
  - ABDOMINAL DISTENSION [None]
  - ASCITES [None]
  - CONSTIPATION [None]
  - ASTHENIA [None]
  - ENURESIS [None]
